FAERS Safety Report 7072192-X (Version None)
Quarter: 2010Q4

REPORT INFORMATION
  Report Type: 
  Country: None (occurrence: None)
  Receive Date: 20101029
  Receipt Date: 20091216
  Transmission Date: 20110411
  Serious: No
  Sender: FDA-Public Use
  Company Number: A0835410A

PATIENT
  Age: 56 Year
  Sex: Male

DRUGS (4)
  1. ADVAIR DISKUS 100/50 [Suspect]
     Indication: CHRONIC OBSTRUCTIVE PULMONARY DISEASE
     Route: 055
     Dates: start: 20091101
  2. LEXAPRO [Concomitant]
  3. XANAX [Concomitant]
  4. TARKA [Concomitant]

REACTIONS (2)
  - COUGH [None]
  - OROPHARYNGEAL PAIN [None]
